FAERS Safety Report 15073928 (Version 1)
Quarter: 2018Q2

REPORT INFORMATION
  Report Type: Spontaneous
  Country: US (occurrence: US)
  Receive Date: 20180606
  Receipt Date: 20180606
  Transmission Date: 20180711
  Serious: No
  Sender: FDA-Public Use
  Company Number: None

PATIENT
  Age: 55 Year
  Sex: Female

DRUGS (7)
  1. DULOXETINE. [Concomitant]
     Active Substance: DULOXETINE
  2. METFORMIN [Concomitant]
     Active Substance: METFORMIN HYDROCHLORIDE
  3. CITALOPRAM [Concomitant]
     Active Substance: CITALOPRAM HYDROBROMIDE
  4. CIMZIA [Suspect]
     Active Substance: CERTOLIZUMAB PEGOL
     Route: 058
     Dates: start: 20170629
  5. HYDROCODONE [Concomitant]
     Active Substance: HYDROCODONE
  6. GABAPENTIN. [Concomitant]
     Active Substance: GABAPENTIN
  7. GLIMEPRIDE [Concomitant]
     Active Substance: GLIMEPIRIDE

REACTIONS (1)
  - Diarrhoea [None]

NARRATIVE: CASE EVENT DATE: 20180605
